FAERS Safety Report 15453271 (Version 1)
Quarter: 2018Q4

REPORT INFORMATION
  Report Type: Spontaneous
  Country: TR (occurrence: TR)
  Receive Date: 20181001
  Receipt Date: 20181001
  Transmission Date: 20190204
  Serious: Yes (Hospitalization)
  Sender: FDA-Public Use
  Company Number: TR-MYLANLABS-2018M1071054

PATIENT
  Age: 3 Hour

DRUGS (2)
  1. LIDOCAINE. [Suspect]
     Active Substance: LIDOCAINE
     Indication: LOCAL ANAESTHESIA
     Dosage: 8 ML EPIDURAL VIGILANCE TEST WAS PERFORMED BY DILUTING 10 ML OF 2% LIDOCAINE
     Route: 064
  2. PRILOCAINE [Suspect]
     Active Substance: PRILOCAINE
     Indication: LOCAL ANAESTHESIA
     Dosage: APPLIED LOCALLY TO THE MOTHER AT DELIVERY
     Route: 064

REACTIONS (3)
  - Methaemoglobinaemia [Recovering/Resolving]
  - Neonatal respiratory distress [Recovering/Resolving]
  - Foetal exposure during delivery [Recovered/Resolved]
